FAERS Safety Report 17130365 (Version 1)
Quarter: 2019Q4

REPORT INFORMATION
  Report Type: Spontaneous
  Country: DE (occurrence: DE)
  Receive Date: 20191209
  Receipt Date: 20191209
  Transmission Date: 20200122
  Serious: Yes (Hospitalization, Other)
  Sender: FDA-Public Use
  Company Number: NVSC2019DE055875

PATIENT
  Age: 29 Year
  Sex: Female
  Weight: 31 kg

DRUGS (7)
  1. FRISIUM [Suspect]
     Active Substance: CLOBAZAM
     Indication: LENNOX-GASTAUT SYNDROME
     Dosage: 10 MG, QD  (2.5-0 TO 7.5 MG)
     Route: 065
     Dates: start: 20190301
  2. LEVETIRACETAM. [Concomitant]
     Active Substance: LEVETIRACETAM
     Indication: PRODUCT USED FOR UNKNOWN INDICATION
     Dosage: 1000 MG, QD (500-0-500MG)
     Route: 065
     Dates: start: 2012
  3. VALPROATE ACID [Suspect]
     Active Substance: VALPROATE SODIUM
     Dosage: 1800 MG, QD  (600-600-600 MG)
     Route: 065
     Dates: start: 201907
  4. FRISIUM [Suspect]
     Active Substance: CLOBAZAM
     Dosage: REDUCED DOSE
     Route: 065
     Dates: start: 201907
  5. VIMPAT [Concomitant]
     Active Substance: LACOSAMIDE
     Dosage: 300 MG, QD (150-0-150 MG)
     Route: 065
     Dates: start: 2014
  6. VALPROATE ACID [Suspect]
     Active Substance: VALPROATE SODIUM
     Indication: LENNOX-GASTAUT SYNDROME
     Dosage: 600 MG, QD (200-200-200 MG)
     Route: 065
     Dates: start: 2014
  7. VIMPAT [Concomitant]
     Active Substance: LACOSAMIDE
     Indication: PRODUCT USED FOR UNKNOWN INDICATION
     Dosage: 100 MG, BID
     Route: 065
     Dates: start: 2014

REACTIONS (4)
  - Pneumonia aspiration [Recovered/Resolved]
  - Sedation [Recovered/Resolved]
  - Disturbance in attention [Unknown]
  - Pneumonia aspiration [Recovered/Resolved]

NARRATIVE: CASE EVENT DATE: 20190708
